FAERS Safety Report 6933336-0 (Version None)
Quarter: 2010Q3

REPORT INFORMATION
  Report Type: 
  Country: None (occurrence: None)
  Receive Date: 20100818
  Receipt Date: 20100818
  Transmission Date: 20110219
  Serious: Yes (Other)
  Sender: FDA-Public Use
  Company Number: None

PATIENT
  Age: 27 Year
  Sex: Female
  Weight: 68.0396 kg

DRUGS (2)
  1. COMPAZINE [Suspect]
     Indication: DEHYDRATION
     Dosage: 10 MG 1X 042 INTRAVENOUS
     Route: 042
     Dates: start: 20100607
  2. COMPAZINE [Suspect]
     Indication: HEADACHE
     Dosage: 10 MG 1X 042 INTRAVENOUS
     Route: 042
     Dates: start: 20100607

REACTIONS (3)
  - ANXIETY [None]
  - DYSTONIA [None]
  - FORMICATION [None]
